FAERS Safety Report 25413286 (Version 1)
Quarter: 2025Q2

REPORT INFORMATION
  Report Type: Spontaneous
  Country: US (occurrence: None)
  Receive Date: 20250607
  Receipt Date: 20250607
  Transmission Date: 20250716
  Serious: Yes (Hospitalization)
  Sender: FDA-CTU
  Company Number: None

PATIENT
  Age: 22 Year
  Sex: Male
  Weight: 126 kg

DRUGS (1)
  1. CLINDAMYCIN PHOSPHATE [Suspect]
     Active Substance: CLINDAMYCIN PHOSPHATE
     Indication: Folliculitis
     Dosage: OTHER QUANTITY : 2 DROP(S);?FREQUENCY : TWICE A DAY;?
     Route: 061

REACTIONS (6)
  - Rash [None]
  - Gastrointestinal pain [None]
  - Diarrhoea [None]
  - Steatorrhoea [None]
  - Faeces discoloured [None]
  - Abnormal faeces [None]

NARRATIVE: CASE EVENT DATE: 20250305
